FAERS Safety Report 13762722 (Version 2)
Quarter: 2017Q3

REPORT INFORMATION
  Report Type: Spontaneous
  Country: US (occurrence: US)
  Receive Date: 20170718
  Receipt Date: 20170818
  Transmission Date: 20171127
  Serious: Yes (Other)
  Sender: FDA-Public Use
  Company Number: US-AMGEN-USASP2017106509

PATIENT
  Age: 58 Year
  Sex: Female

DRUGS (8)
  1. ENBREL [Suspect]
     Active Substance: ETANERCEPT
     Indication: RAYNAUD^S PHENOMENON
     Dosage: 50 MG, QWK
     Route: 058
     Dates: start: 2010
  2. MORPHINE SULFATE. [Concomitant]
     Active Substance: MORPHINE SULFATE
     Dosage: 30 MG, UNK
  3. ENBREL [Suspect]
     Active Substance: ETANERCEPT
     Dosage: 50 MG, QWK
     Route: 058
     Dates: start: 20170706
  4. OXYCODONE HYDROCHLORIDE. [Concomitant]
     Active Substance: OXYCODONE HYDROCHLORIDE
     Dosage: 10 MG, UNK
  5. CARISOPRODOL. [Concomitant]
     Active Substance: CARISOPRODOL
     Dosage: 350 MG, UNK
  6. LAMOTRIGINE. [Concomitant]
     Active Substance: LAMOTRIGINE
     Dosage: 25 MG, UNK
  7. LEFLUNOMIDE. [Concomitant]
     Active Substance: LEFLUNOMIDE
     Dosage: 20 MG, UNK
  8. COLCRYS [Concomitant]
     Active Substance: COLCHICINE
     Dosage: 0.6 MG, UNK

REACTIONS (3)
  - Off label use [Unknown]
  - Post procedural infection [Recovered/Resolved]
  - Spinal operation [Recovered/Resolved]

NARRATIVE: CASE EVENT DATE: 2010
